FAERS Safety Report 8295867-3 (Version None)
Quarter: 2012Q2

REPORT INFORMATION
  Report Type: 
  Country: None (occurrence: None)
  Receive Date: 20120417
  Receipt Date: 20120417
  Transmission Date: 20120825
  Serious: No
  Sender: FDA-Public Use
  Company Number: None

PATIENT
  Age: 67 Year
  Sex: Male
  Weight: 82.2 kg

DRUGS (1)
  1. TELAPREVIR [Suspect]
     Indication: HEPATITIS C
     Dosage: MG PO
     Route: 048
     Dates: start: 20111019, end: 20111227

REACTIONS (4)
  - HYPOTHYROIDISM [None]
  - DRUG HYPERSENSITIVITY [None]
  - BLOOD THYROID STIMULATING HORMONE INCREASED [None]
  - LEUKOCYTOCLASTIC VASCULITIS [None]
